FAERS Safety Report 20598400 (Version 2)
Quarter: 2022Q2

REPORT INFORMATION
  Report Type: Spontaneous
  Country: US (occurrence: US)
  Receive Date: 20220315
  Receipt Date: 20220422
  Transmission Date: 20220721
  Serious: No
  Sender: FDA-Public Use
  Company Number: US-PFIZER INC-202200402682

PATIENT
  Age: 65 Year
  Sex: Male

DRUGS (7)
  1. PREGABALIN [Interacting]
     Active Substance: PREGABALIN
     Indication: Pain
     Dosage: 200 MG, 1X/DAY
  2. PREGABALIN [Interacting]
     Active Substance: PREGABALIN
     Indication: Nerve injury
  3. PREGABALIN [Interacting]
     Active Substance: PREGABALIN
     Indication: Neck injury
  4. LISINOPRIL [Interacting]
     Active Substance: LISINOPRIL
     Indication: Blood pressure abnormal
     Dosage: 20 MG, 2X/DAY
     Route: 048
  5. CLOPIDOGREL [Concomitant]
     Active Substance: CLOPIDOGREL BISULFATE
     Indication: Blood pressure abnormal
     Dosage: 75 MG, 1X/DAY
     Route: 048
  6. ATORVASTATIN CALCIUM [Concomitant]
     Active Substance: ATORVASTATIN CALCIUM
     Dosage: 40 MG, 1X/DAY
     Route: 048
  7. AMLODIPINE BESYLATE [Concomitant]
     Active Substance: AMLODIPINE BESYLATE
     Indication: Polyuria
     Dosage: 5 MG, 1X/DAY
     Route: 048

REACTIONS (8)
  - Therapeutic product effect incomplete [Unknown]
  - Neck pain [Unknown]
  - Drug interaction [Unknown]
  - Illness [Unknown]
  - Swelling [Recovered/Resolved]
  - Drug hypersensitivity [Unknown]
  - Epigastric discomfort [Unknown]
  - Constipation [Unknown]
